FAERS Safety Report 24320439 (Version 1)
Quarter: 2024Q3

REPORT INFORMATION
  Report Type: Other
  Country: IR (occurrence: IR)
  Receive Date: 20240915
  Receipt Date: 20240915
  Transmission Date: 20241016
  Serious: Yes (Life-Threatening, Hospitalization, Other)
  Sender: DEXCEL
  Company Number: None

PATIENT
  Sex: Female

DRUGS (1)
  1. OMEPRAZOLE [Suspect]
     Active Substance: OMEPRAZOLE
     Indication: Peptic ulcer
     Dosage: INTERMITTENTLY FOR 5 YEARS

REACTIONS (3)
  - Peptic ulcer perforation [Not Recovered/Not Resolved]
  - Drug ineffective for unapproved indication [Unknown]
  - Peritonitis [Not Recovered/Not Resolved]
